FAERS Safety Report 16070212 (Version 1)
Quarter: 2019Q1

REPORT INFORMATION
  Report Type: Spontaneous
  Country: US (occurrence: US)
  Receive Date: 20190314
  Receipt Date: 20190314
  Transmission Date: 20190418
  Serious: No
  Sender: FDA-Public Use
  Company Number: US-TEVA-2019-US-1012918

PATIENT
  Sex: Female

DRUGS (4)
  1. TOBRAMYCIN INHALATION SOLUTION, USP [Suspect]
     Active Substance: TOBRAMYCIN
     Indication: COUGH
  2. TOBRAMYCIN INHALATION SOLUTION, USP [Suspect]
     Active Substance: TOBRAMYCIN
     Indication: SINUSITIS
  3. TOBRAMYCIN INHALATION SOLUTION, USP [Suspect]
     Active Substance: TOBRAMYCIN
     Indication: SINUS DISORDER
     Route: 065
     Dates: start: 20190201
  4. TOBRAMYCIN INHALATION SOLUTION, USP [Suspect]
     Active Substance: TOBRAMYCIN
     Indication: PSEUDOMONAS INFECTION

REACTIONS (3)
  - Product use issue [Unknown]
  - Product use in unapproved indication [Unknown]
  - Drug ineffective [Unknown]

NARRATIVE: CASE EVENT DATE: 20190201
